FAERS Safety Report 6154598-6 (Version None)
Quarter: 2009Q2

REPORT INFORMATION
  Report Type: 
  Country: None (occurrence: None)
  Receive Date: 20090414
  Receipt Date: 20090331
  Transmission Date: 20091009
  Serious: Yes (Death)
  Sender: FDA-Public Use
  Company Number: JP-ROCHE-625554

PATIENT
  Sex: Female
  Weight: 54.4 kg

DRUGS (10)
  1. MYCOPHENOLATE MOFETIL [Suspect]
     Indication: PROPHYLAXIS AGAINST GRAFT VERSUS HOST DISEASE
     Route: 048
     Dates: start: 20070329, end: 20070425
  2. MEDROL [Concomitant]
     Route: 048
     Dates: start: 20070406
  3. PROGRAFT [Concomitant]
     Route: 048
     Dates: start: 20070423, end: 20070531
  4. DIFLUCAN [Concomitant]
     Route: 048
     Dates: start: 20070329, end: 20070524
  5. CRAVIT [Concomitant]
     Route: 048
     Dates: start: 20070329, end: 20070524
  6. URSO 250 [Concomitant]
     Route: 048
     Dates: start: 20070329, end: 20070524
  7. OMEPRAL [Concomitant]
     Dosage: FORM REPORTED AS: ENTERIC.
     Route: 048
     Dates: start: 20070329, end: 20070524
  8. ALLOID G [Concomitant]
     Route: 048
     Dates: start: 20070329, end: 20070501
  9. ZOVIRAX [Concomitant]
     Route: 048
     Dates: start: 20070329, end: 20070524
  10. ENTERONON-R [Concomitant]
     Route: 048
     Dates: start: 20070405, end: 20070524

REACTIONS (9)
  - ALANINE AMINOTRANSFERASE INCREASED [None]
  - DEATH [None]
  - GAMMA-GLUTAMYLTRANSFERASE INCREASED [None]
  - HAEMATOCRIT DECREASED [None]
  - HAEMOGLOBIN DECREASED [None]
  - PLATELET COUNT DECREASED [None]
  - RED BLOOD CELL COUNT DECREASED [None]
  - VOMITING [None]
  - WHITE BLOOD CELL COUNT DECREASED [None]
